FAERS Safety Report 8587890-6 (Version None)
Quarter: 2012Q3

REPORT INFORMATION
  Report Type: 
  Country: None (occurrence: None)
  Receive Date: 20120813
  Receipt Date: 20120802
  Transmission Date: 20120928
  Serious: No
  Sender: FDA-Public Use
  Company Number: US-BIOGENIDEC-2012BI029218

PATIENT
  Age: 27 Year
  Sex: Female

DRUGS (4)
  1. TYSABRI [Suspect]
     Indication: MULTIPLE SCLEROSIS
     Route: 042
     Dates: start: 20080612
  2. NEURONTIN [Concomitant]
     Indication: PAIN
  3. KLONOPIN [Concomitant]
     Indication: PAIN
  4. LORTAB [Concomitant]
     Indication: PAIN

REACTIONS (5)
  - BACK PAIN [None]
  - VAGINAL DISCHARGE [None]
  - PAIN [None]
  - ABDOMINAL PAIN [None]
  - BACTERIURIA [None]
